FAERS Safety Report 11311368 (Version 1)
Quarter: 2015Q3

REPORT INFORMATION
  Report Type: Spontaneous
  Country: CA (occurrence: None)
  Receive Date: 20150723
  Receipt Date: 20150723
  Transmission Date: 20151125
  Serious: Yes (Other)
  Sender: FDA-Public Use
  Company Number: AMAG201500770

PATIENT
  Age: 44 Year
  Sex: Female
  Weight: 83 kg

DRUGS (6)
  1. RAMIPRIL. [Concomitant]
     Active Substance: RAMIPRIL
  2. AMIODIPINE (AMLODIPINE MALEATE) [Concomitant]
  3. METFORMIN [Concomitant]
     Active Substance: METFORMIN HYDROCHLORIDE
  4. ATORVASTATIN (ATORVASTATIN CALCIUM) [Concomitant]
  5. FERAHEME [Suspect]
     Active Substance: FERUMOXYTOL NON-STOICHIOMETRIC MAGNETITE
     Indication: IRON DEFICIENCY
     Dosage: SINGLE
     Route: 042
     Dates: start: 20141203, end: 20141203
  6. CELEXA [Concomitant]
     Active Substance: CITALOPRAM HYDROBROMIDE

REACTIONS (5)
  - Blood pressure increased [None]
  - Malaise [None]
  - Palpitations [None]
  - Chills [None]
  - Body temperature increased [None]

NARRATIVE: CASE EVENT DATE: 20141203
